FAERS Safety Report 6689219-7 (Version None)
Quarter: 2010Q2

REPORT INFORMATION
  Report Type: 
  Country: None (occurrence: None)
  Receive Date: 20100413
  Receipt Date: 20100401
  Transmission Date: 20101027
  Serious: Yes (Hospitalization)
  Sender: FDA-Public Use
  Company Number: 2009-198388-NL

PATIENT
  Age: 29 Year
  Sex: Female
  Weight: 86.1834 kg

DRUGS (3)
  1. NUVARING [Suspect]
     Indication: CONTRACEPTION
     Dates: start: 20050101, end: 20080101
  2. TYLENOL PM [Concomitant]
  3. CALCIUM [Concomitant]

REACTIONS (10)
  - ANKLE FRACTURE [None]
  - DEEP VEIN THROMBOSIS [None]
  - DILATATION VENTRICULAR [None]
  - FALL [None]
  - JOINT SPRAIN [None]
  - PULMONARY EMBOLISM [None]
  - PULMONARY HYPERTENSION [None]
  - RIGHT ATRIAL DILATATION [None]
  - SYNCOPE [None]
  - TACHYCARDIA [None]
